FAERS Safety Report 4664889-3 (Version None)
Quarter: 2005Q2

REPORT INFORMATION
  Report Type: 
  Country: None (occurrence: None)
  Receive Date: 20050518
  Receipt Date: 20050509
  Transmission Date: 20051028
  Serious: Yes (Death, Life-Threatening, Hospitalization)
  Sender: FDA-Public Use
  Company Number: PL-BRISTOL-MYERS SQUIBB COMPANY-12970455

PATIENT
  Age: 56 Year
  Sex: Female

DRUGS (9)
  1. CETUXIMAB [Suspect]
     Indication: NON-SMALL CELL LUNG CANCER
     Dosage: MOST RECENT TX ON 05-MAY-05.  THE PATIENT HAD REC'D 5 INFUSIONS TO DATE.
     Route: 042
     Dates: start: 20050405
  2. CISPLATIN [Suspect]
     Indication: NON-SMALL CELL LUNG CANCER
     Dosage: MOST RECENT TX ON 26-APR-05.  THE PATIENT HAD REC'D 2 INFUSIONS TO DATE.
     Route: 042
     Dates: start: 20050405
  3. VINORELBINE TARTRATE [Suspect]
     Indication: NON-SMALL CELL LUNG CANCER
     Dosage: MOST RECENT TX ON 04-MAY-05. THE PATIENT HAD REC'D 4 INFUSIONS TO DATE.
     Route: 042
     Dates: start: 20050405
  4. HYDROXYZINE [Concomitant]
  5. OMEPRAZOLE [Concomitant]
  6. ETAMSYLATE [Concomitant]
  7. METOPROLOL [Concomitant]
  8. SPIRONOLACTONE [Concomitant]
  9. DEXAMETHASONE [Concomitant]

REACTIONS (2)
  - FEBRILE NEUTROPENIA [None]
  - SEPTIC SHOCK [None]
